FAERS Safety Report 5284287-1 (Version None)
Quarter: 2007Q1

REPORT INFORMATION
  Report Type: 
  Country: None (occurrence: None)
  Receive Date: 20070319
  Receipt Date: 20070226
  Transmission Date: 20070707
  Serious: Yes (Other)
  Sender: FDA-Public Use
  Company Number: 200610427BBE

PATIENT
  Age: 46 Year
  Sex: Female
  Weight: 116.1208 kg

DRUGS (6)
  1. GAMUNEX [Suspect]
     Indication: INFERTILITY
     Dosage: 40 GM; 1X; IV
     Route: 042
     Dates: start: 20050801, end: 20061102
  2. ESTROGENS CONJUGATED [Concomitant]
  3. HUMIRA [Concomitant]
  4. DECADRON /03050601 [Concomitant]
  5. METFORMIN HCL [Concomitant]
  6. ASPIRIN [Concomitant]

REACTIONS (9)
  - ARTHRALGIA [None]
  - FATIGUE [None]
  - FEELING ABNORMAL [None]
  - FULL BLOOD COUNT ABNORMAL [None]
  - HEADACHE [None]
  - LIVER FUNCTION TEST ABNORMAL [None]
  - LYME DISEASE [None]
  - MYALGIA [None]
  - PAIN [None]
